FAERS Safety Report 17301110 (Version 3)
Quarter: 2020Q1

REPORT INFORMATION
  Report Type: Spontaneous
  Country: US (occurrence: US)
  Receive Date: 20200122
  Receipt Date: 20200316
  Transmission Date: 20200409
  Serious: No
  Sender: FDA-Public Use
  Company Number: US-PFIZER INC-2020028131

PATIENT
  Age: 72 Year
  Sex: Male

DRUGS (1)
  1. LYRICA [Suspect]
     Active Substance: PREGABALIN
     Indication: ARACHNOIDITIS
     Dosage: 150 MG, 2X/DAY
     Dates: start: 2017

REACTIONS (3)
  - Off label use [Unknown]
  - Panic disorder [Unknown]
  - Product use in unapproved indication [Unknown]
